FAERS Safety Report 4759766-3 (Version None)
Quarter: 2005Q3

REPORT INFORMATION
  Report Type: 
  Country: None (occurrence: None)
  Receive Date: 20050829
  Receipt Date: 20050708
  Transmission Date: 20060218
  Serious: No
  Sender: FDA-Public Use
  Company Number: S05-USA-03444-01

PATIENT
  Age: 55 Year
  Sex: Female

DRUGS (3)
  1. CAMPRAL [Suspect]
     Indication: ALCOHOLISM
     Dosage: 666 MG TID PO
     Route: 048
     Dates: start: 20050617, end: 20050624
  2. CAMPRAL [Suspect]
     Indication: ALCOHOLISM
     Dosage: 333 MG TID PO
     Route: 048
     Dates: start: 20050625
  3. WELLBUTRIN [Suspect]
     Indication: DEPRESSION
     Dosage: 300 MG QD PO
     Route: 048

REACTIONS (3)
  - DIZZINESS [None]
  - DRUG INTERACTION [None]
  - MIGRAINE WITH AURA [None]
